FAERS Safety Report 6106329 (Version 16)
Quarter: 2013Q4

REPORT INFORMATION
  Report Type: Spontaneous
  Country: US (occurrence: US)
  Receive Date: 20060814
  Receipt Date: 20131025
  Transmission Date: 20140711
  Serious: Yes (Hospitalization, Other)
  Sender: FDA-Public Use
  Company Number: US-ROCHE-458431

PATIENT
  Age: 27 Year
  Sex: Male
  Weight: 81.6 kg

DRUGS (1)
  1. ACCUTANE [Suspect]
     Indication: ACNE
     Dosage: ON 14 MAY 1993, THE DOSAGE REGIMEN WAS REPORTED AS 80 MG DAILY.
     Route: 048
     Dates: start: 19921228, end: 19930530

REACTIONS (10)
  - Enteritis [Unknown]
  - Small intestinal obstruction [Unknown]
  - Crohn^s disease [Unknown]
  - Inflammatory bowel disease [Unknown]
  - Colitis [Unknown]
  - Multiple sclerosis [Unknown]
  - Depression [Unknown]
  - Emotional distress [Unknown]
  - Anaemia [Unknown]
  - Anxiety [Unknown]
